FAERS Safety Report 8152587 (Version 3)
Quarter: 2014Q2

REPORT INFORMATION
  Report Type: Spontaneous
  Country: US (occurrence: US)
  Receive Date: 20110922
  Receipt Date: 20140507
  Transmission Date: 20141212
  Serious: No
  Sender: FDA-Public Use
  Company Number: US-ASTRAZENECA-2011SE12980

PATIENT
  Age: 75 Year
  Sex: Female
  Weight: 43.1 kg

DRUGS (4)
  1. SEROQUEL [Suspect]
     Indication: INSOMNIA
     Route: 048
     Dates: start: 2010
  2. NEXIUM [Suspect]
     Indication: GASTROOESOPHAGEAL REFLUX DISEASE
     Route: 048
     Dates: start: 201401
  3. VITAMIN D [Concomitant]
     Indication: VITAMIN SUPPLEMENTATION
     Dosage: 400 IU, ONE, TWO OR THREE TIMES A DAY
     Dates: start: 201403
  4. CARAFATE [Concomitant]
     Indication: PRODUCT USED FOR UNKNOWN INDICATION
     Dates: start: 20140402

REACTIONS (17)
  - Insomnia [Unknown]
  - Gastrooesophageal reflux disease [Unknown]
  - Dysphonia [Unknown]
  - Chest pain [Not Recovered/Not Resolved]
  - Flatulence [Unknown]
  - Burning sensation [Not Recovered/Not Resolved]
  - Weight decreased [Recovered/Resolved]
  - Diverticulum [Unknown]
  - Diverticulitis [Unknown]
  - Vitamin D decreased [Unknown]
  - Fluid intake reduced [Unknown]
  - Weight increased [Unknown]
  - Psychomotor hyperactivity [Recovering/Resolving]
  - Increased appetite [Recovered/Resolved]
  - Off label use [Unknown]
  - Drug dose omission [Unknown]
  - Drug effect incomplete [Unknown]
